FAERS Safety Report 16205873 (Version 1)
Quarter: 2019Q2

REPORT INFORMATION
  Report Type: Spontaneous
  Country: US (occurrence: US)
  Receive Date: 20190312
  Receipt Date: 20190312
  Transmission Date: 20190711
  Serious: Yes (Life-Threatening)
  Sender: FDA-Public Use
  Company Number: None

PATIENT
  Sex: Male
  Weight: 81.65 kg

DRUGS (3)
  1. ZOLOFT [Concomitant]
     Active Substance: SERTRALINE HYDROCHLORIDE
  2. ADIVAN [Concomitant]
  3. XIIDRA [Suspect]
     Active Substance: LIFITEGRAST
     Indication: DRY EYE
     Dosage: ?          QUANTITY:1 IN EACH EYE;OTHER ROUTE:IN EYES?
     Dates: start: 20180201, end: 20180628

REACTIONS (10)
  - Headache [None]
  - Vision blurred [None]
  - Alopecia [None]
  - Tongue neoplasm malignant stage unspecified [None]
  - Head and neck cancer [None]
  - Erythema [None]
  - Rash [None]
  - Skin lesion [None]
  - Glossodynia [None]
  - Dysgeusia [None]
